FAERS Safety Report 5721554-9 (Version None)
Quarter: 2008Q2

REPORT INFORMATION
  Report Type: 
  Country: None (occurrence: None)
  Receive Date: 20080428
  Receipt Date: 20080428
  Transmission Date: 20081010
  Serious: Yes (Other)
  Sender: FDA-Public Use
  Company Number: None

PATIENT
  Sex: Male
  Weight: 90.7194 kg

DRUGS (2)
  1. BUDEPRION SR TABLET 100 MG TEVA [Suspect]
     Indication: ANXIETY
     Dosage: 100MG TWICE DAILY PO
     Route: 048
     Dates: start: 20051101, end: 20080428
  2. BUDEPRION SR TABLET 100 MG TEVA [Suspect]
     Indication: DEPRESSION
     Dosage: 100MG TWICE DAILY PO
     Route: 048
     Dates: start: 20051101, end: 20080428

REACTIONS (1)
  - ARTHRALGIA [None]
